FAERS Safety Report 5903466-0 (Version None)
Quarter: 2008Q3

REPORT INFORMATION
  Report Type: 
  Country: None (occurrence: None)
  Receive Date: 20080919
  Receipt Date: 20080624
  Transmission Date: 20090109
  Serious: No
  Sender: FDA-Public Use
  Company Number: US-WYE-H04724908

PATIENT
  Age: 54 Year
  Sex: Female
  Weight: 49.94 kg

DRUGS (4)
  1. PRISTIQ [Suspect]
     Indication: DEPRESSION
  2. XANAX [Concomitant]
  3. HYZAAR [Concomitant]
  4. TOPROL-XL [Concomitant]

REACTIONS (12)
  - ANOREXIA [None]
  - CHEST DISCOMFORT [None]
  - CHEST PAIN [None]
  - CONSTIPATION [None]
  - DIZZINESS [None]
  - DRY MOUTH [None]
  - HEADACHE [None]
  - HYPERHIDROSIS [None]
  - INSOMNIA [None]
  - NAUSEA [None]
  - SOMNOLENCE [None]
  - TREMOR [None]
